FAERS Safety Report 4283069-7 (Version None)
Quarter: 2004Q1

REPORT INFORMATION
  Report Type: 
  Country: None (occurrence: None)
  Receive Date: 20040129
  Receipt Date: 20040123
  Transmission Date: 20041129
  Serious: Yes (Disabling)
  Sender: FDA-Public Use
  Company Number: 000724

PATIENT
  Age: 49 Year
  Sex: Female

DRUGS (4)
  1. DIAMOX [Suspect]
  2. PREMARINES (ESTROGENS CONJUGATED) [Suspect]
  3. VICODIN (PARACETAMOL) [Concomitant]
  4. MORPHINE [Concomitant]

REACTIONS (19)
  - AMNESIA [None]
  - BLINDNESS [None]
  - DIZZINESS [None]
  - FALL [None]
  - HAEMATURIA [None]
  - HAEMORRHAGE [None]
  - HEADACHE [None]
  - IMPAIRED DRIVING ABILITY [None]
  - MIGRAINE [None]
  - NEPHROLITHIASIS [None]
  - OEDEMA PERIPHERAL [None]
  - PAIN [None]
  - PAIN EXACERBATED [None]
  - PAIN IN EXTREMITY [None]
  - RETINAL VEIN OCCLUSION [None]
  - SURGICAL PROCEDURE REPEATED [None]
  - SYNCOPE [None]
  - THROMBOSIS [None]
  - VISUAL DISTURBANCE [None]
